FAERS Safety Report 12954323 (Version 1)
Quarter: 2016Q4

REPORT INFORMATION
  Report Type: Spontaneous
  Country: US (occurrence: US)
  Receive Date: 20161118
  Receipt Date: 20161118
  Transmission Date: 20170207
  Serious: No
  Sender: FDA-Public Use
  Company Number: US-MYLANLABS-2016M1016616

PATIENT
  Age: 60 Year
  Sex: Female

DRUGS (2)
  1. NADOLOL TABLETS, USP [Suspect]
     Active Substance: NADOLOL
     Indication: ARRHYTHMIA
     Dosage: 40 MG, QD
     Route: 048
     Dates: start: 20160226, end: 2016
  2. NADOLOL TABLETS, USP [Suspect]
     Active Substance: NADOLOL
     Indication: OFF LABEL USE

REACTIONS (1)
  - Drug ineffective for unapproved indication [Recovered/Resolved]

NARRATIVE: CASE EVENT DATE: 201602
